FAERS Safety Report 8995789 (Version 1)
Quarter: 2013Q1

REPORT INFORMATION
  Report Type: Spontaneous
  Country: US (occurrence: US)
  Receive Date: 20130103
  Receipt Date: 20130103
  Transmission Date: 20140127
  Serious: No
  Sender: FDA-Public Use
  Company Number: US-ABBOTT-12P-163-0920314-00

PATIENT
  Sex: Female

DRUGS (2)
  1. SYNTHROID [Suspect]
     Indication: THYROIDECTOMY
     Dosage: 1 TABLET DAILY FOR 6 DAYS A WEEK
     Route: 048
     Dates: start: 2010
  2. SYNTHROID [Suspect]
     Dosage: TAKE 1 TABLET ON DAY 7 OF EACH WEEK
     Route: 048
     Dates: start: 2010

REACTIONS (1)
  - Abdominal pain upper [Not Recovered/Not Resolved]
